FAERS Safety Report 11425087 (Version 1)
Quarter: 2015Q3

REPORT INFORMATION
  Report Type: Spontaneous
  Country: GB (occurrence: GB)
  Receive Date: 20150827
  Receipt Date: 20150827
  Transmission Date: 20151125
  Serious: Yes (Life-Threatening, Other)
  Sender: FDA-Public Use
  Company Number: GB-FRESENIUS KABI-FK201504049

PATIENT
  Age: 63 Year
  Sex: Male
  Weight: 118 kg

DRUGS (11)
  1. METFORMIN [Concomitant]
     Active Substance: METFORMIN HYDROCHLORIDE
  2. OMEPRAZOLE. [Concomitant]
     Active Substance: OMEPRAZOLE
  3. BENDROFLUMETHIAZIDE [Concomitant]
     Active Substance: BENDROFLUMETHIAZIDE
  4. DOXAZOSIN [Concomitant]
     Active Substance: DOXAZOSIN\DOXAZOSIN MESYLATE
  5. LIDOCAINE (MANUFACTURER UNKNOWN) (LIDOCAINE) (LIDOCAINE) [Suspect]
     Active Substance: LIDOCAINE
     Indication: INDUCTION OF ANAESTHESIA
     Route: 042
     Dates: start: 20150806, end: 20150806
  6. FENTANYL. [Suspect]
     Active Substance: FENTANYL
     Indication: INDUCTION OF ANAESTHESIA
     Route: 042
     Dates: start: 20150806, end: 20150806
  7. ASPIRIN. [Concomitant]
     Active Substance: ASPIRIN
  8. GLICLAZIDE [Concomitant]
     Active Substance: GLICLAZIDE
  9. CORACTEN [Concomitant]
  10. ROCURONIUM (MANUFACTURER UNKNOWN) (ROCURONIUM) (ROCURONIUM) [Suspect]
     Active Substance: ROCURONIUM BROMIDE
     Indication: MUSCLE RELAXANT THERAPY
     Route: 042
     Dates: start: 20150806, end: 20150806
  11. RAMIPRIL. [Concomitant]
     Active Substance: RAMIPRIL

REACTIONS (1)
  - Anaphylactic reaction [Recovering/Resolving]

NARRATIVE: CASE EVENT DATE: 20150806
